FAERS Safety Report 8312167-3 (Version None)
Quarter: 2012Q2

REPORT INFORMATION
  Report Type: 
  Country: None (occurrence: None)
  Receive Date: 20120425
  Receipt Date: 20120417
  Transmission Date: 20120825
  Serious: Yes (Other)
  Sender: FDA-Public Use
  Company Number: US-CTI_01461_2012

PATIENT
  Sex: Male

DRUGS (4)
  1. PROAIR HFA [Concomitant]
     Dosage: DF
  2. ZYFLO CR [Suspect]
     Indication: PRODUCT USED FOR UNKNOWN INDICATION
     Dates: start: 20120309, end: 20120406
  3. PULMICORT [Concomitant]
     Dosage: DF
  4. ALVESCO [Concomitant]
     Dosage: DF

REACTIONS (6)
  - BLOOD BILIRUBIN INCREASED [None]
  - PYREXIA [None]
  - FATIGUE [None]
  - HEADACHE [None]
  - ALANINE AMINOTRANSFERASE INCREASED [None]
  - ASPARTATE AMINOTRANSFERASE INCREASED [None]
